FAERS Safety Report 9314573 (Version 1)
Quarter: 2013Q2

REPORT INFORMATION
  Report Type: Spontaneous
  Country: US (occurrence: US)
  Receive Date: 20130529
  Receipt Date: 20130529
  Transmission Date: 20140414
  Serious: Yes (Other)
  Sender: FDA-Public Use
  Company Number: US-PFIZER INC-2013158703

PATIENT
  Age: 70 Year
  Sex: Male

DRUGS (1)
  1. VIAGRA [Suspect]
     Dosage: 100 MG, SINGLE
     Route: 048
     Dates: start: 20130520, end: 20130520

REACTIONS (3)
  - Vision blurred [Unknown]
  - Photopsia [Unknown]
  - Cyanopsia [Unknown]
